FAERS Safety Report 12137354 (Version 1)
Quarter: 2016Q1

REPORT INFORMATION
  Report Type: Spontaneous
  Country: US (occurrence: US)
  Receive Date: 20160302
  Receipt Date: 20160302
  Transmission Date: 20160526
  Serious: Yes (Other)
  Sender: FDA-Public Use
  Company Number: US-TEVA-639093USA

PATIENT
  Age: 31 Year
  Sex: Female
  Weight: 59.93 kg

DRUGS (2)
  1. CLONAZEPAM. [Suspect]
     Active Substance: CLONAZEPAM
     Indication: MITRAL VALVE PROLAPSE
     Route: 065
     Dates: start: 20151109
  2. CLONAZEPAM. [Suspect]
     Active Substance: CLONAZEPAM
     Indication: POSTURAL ORTHOSTATIC TACHYCARDIA SYNDROME

REACTIONS (9)
  - Gastrointestinal disorder [Unknown]
  - Rash [Unknown]
  - Weight increased [Unknown]
  - Abdominal distension [Unknown]
  - Oral mucosal blistering [Unknown]
  - Drug dispensing error [Unknown]
  - Skin disorder [Unknown]
  - Secretion discharge [Unknown]
  - Product use issue [Unknown]

NARRATIVE: CASE EVENT DATE: 2015
